FAERS Safety Report 23983776 (Version 1)
Quarter: 2024Q2

REPORT INFORMATION
  Report Type: Spontaneous
  Country: MA (occurrence: MA)
  Receive Date: 20240618
  Receipt Date: 20240618
  Transmission Date: 20240716
  Serious: Yes (Hospitalization, Other)
  Sender: FDA-Public Use
  Company Number: MA-CHEPLA-2024007437

PATIENT
  Age: 27 Year
  Sex: Female

DRUGS (6)
  1. OLANZAPINE [Suspect]
     Active Substance: OLANZAPINE
     Indication: Schizoaffective disorder
     Dosage: DAILY DOSE: 10 MILLIGRAM
  2. OLANZAPINE [Suspect]
     Active Substance: OLANZAPINE
     Indication: Psychomotor skills impaired
     Dosage: DAILY DOSE: 10 MILLIGRAM
  3. OLANZAPINE [Suspect]
     Active Substance: OLANZAPINE
     Indication: Schizoaffective disorder
     Dosage: DAILY DOSE: 15 MILLIGRAM
  4. OLANZAPINE [Suspect]
     Active Substance: OLANZAPINE
     Indication: Psychomotor skills impaired
     Dosage: DAILY DOSE: 15 MILLIGRAM
  5. CHLORPROMAZINE [Suspect]
     Active Substance: CHLORPROMAZINE
     Indication: Psychomotor skills impaired
     Dosage: DAILY DOSE: 300 MILLIGRAM
  6. DIAZEPAM [Suspect]
     Active Substance: DIAZEPAM
     Indication: Psychomotor skills impaired
     Dosage: DAILY DOSE: 30 MILLIGRAM

REACTIONS (5)
  - Joint dislocation [Recovering/Resolving]
  - Dystonia [Unknown]
  - Hypotension [Recovered/Resolved]
  - Sedation [Unknown]
  - Salivary hypersecretion [Unknown]
